FAERS Safety Report 23306826 (Version 1)
Quarter: 2023Q4

REPORT INFORMATION
  Report Type: Spontaneous
  Country: JP (occurrence: JP)
  Receive Date: 20231218
  Receipt Date: 20231218
  Transmission Date: 20240110
  Serious: Yes (Hospitalization, Other)
  Sender: FDA-Public Use
  Company Number: JP-BAXTER-2023BAX037342

PATIENT
  Age: 89 Year
  Sex: Female

DRUGS (1)
  1. REGUNEAL LCA [Suspect]
     Active Substance: CALCIUM CHLORIDE\DEXTROSE MONOHYDRATE\HYDROCHLORIC ACID\MAGNESIUM CHLORIDE\SODIUM BICARBONATE\SODIUM
     Indication: Peritoneal dialysis
     Dosage: 2.5 LITERS, 3 BAGS
     Route: 033
     Dates: start: 20231004

REACTIONS (5)
  - Cardiac failure [Unknown]
  - Dyspnoea [Unknown]
  - Hypervolaemia [Unknown]
  - Hyperphagia [Unknown]
  - Polydipsia [Unknown]
